FAERS Safety Report 5392718-1 (Version None)
Quarter: 2007Q3

REPORT INFORMATION
  Report Type: 
  Country: None (occurrence: None)
  Receive Date: 20070720
  Receipt Date: 20070716
  Transmission Date: 20080115
  Serious: Yes (Other)
  Sender: FDA-Public Use
  Company Number: CH-PFIZER INC-2007053412

PATIENT
  Sex: Female
  Weight: 58 kg

DRUGS (8)
  1. SILDENAFIL (PAH) [Suspect]
     Indication: PULMONARY HYPERTENSION
     Route: 048
     Dates: start: 20070612, end: 20070626
  2. SILDENAFIL (PAH) [Suspect]
  3. AMILORIDE HCL AND HYDROCHLOROTHIAZIDE [Concomitant]
  4. TORSEMIDE [Concomitant]
  5. TRACLEER [Concomitant]
     Dosage: DAILY DOSE:125MG
  6. TORSEMIDE [Concomitant]
     Dosage: DAILY DOSE:10MG
  7. MARCUMAR [Concomitant]
  8. COMILORIDE [Concomitant]

REACTIONS (3)
  - NASAL CONGESTION [None]
  - NAUSEA [None]
  - OEDEMA PERIPHERAL [None]
